FAERS Safety Report 24675915 (Version 1)
Quarter: 2024Q4

REPORT INFORMATION
  Report Type: Spontaneous
  Country: DE (occurrence: DE)
  Receive Date: 20241128
  Receipt Date: 20241128
  Transmission Date: 20250115
  Serious: Yes (Hospitalization, Other)
  Sender: SANDOZ
  Company Number: DE-SANDOZ-SDZ2024DE098535

PATIENT
  Sex: Female

DRUGS (1)
  1. TYRUKO [Suspect]
     Active Substance: NATALIZUMAB-SZTN
     Indication: Product used for unknown indication
     Dosage: UNK
     Route: 065
     Dates: start: 202404

REACTIONS (1)
  - Hypertensive crisis [Recovering/Resolving]
